FAERS Safety Report 17694892 (Version 1)
Quarter: 2020Q2

REPORT INFORMATION
  Report Type: Spontaneous
  Country: FI (occurrence: FI)
  Receive Date: 20200422
  Receipt Date: 20200422
  Transmission Date: 20200714
  Serious: Yes (Death)
  Sender: FDA-Public Use
  Company Number: FI-DSJP-DSE-2020-111714

PATIENT

DRUGS (8)
  1. BISOPROLOL                         /00802602/ [Concomitant]
     Active Substance: BISOPROLOL
     Indication: ARRHYTHMIA
     Dosage: 10 MG, QD
     Route: 048
     Dates: start: 20150225, end: 20200214
  2. MEMANTINE                          /00646902/ [Concomitant]
     Active Substance: MEMANTINE HYDROCHLORIDE
     Indication: DEMENTIA ALZHEIMER^S TYPE
     Dosage: 10 MG, QD
     Route: 048
     Dates: start: 20170830, end: 20200214
  3. DONEPEZIL                          /01318902/ [Concomitant]
     Active Substance: DONEPEZIL
     Indication: DEMENTIA ALZHEIMER^S TYPE
     Dosage: 10 MG, QD
     Route: 048
     Dates: start: 20150824, end: 20190630
  4. LIXIANA [Suspect]
     Active Substance: EDOXABAN TOSYLATE
     Indication: ARRHYTHMIA
     Dosage: 30 MG, QD
     Route: 048
     Dates: start: 20190701, end: 20200214
  5. BETOLVEX                           /00056201/ [Concomitant]
     Active Substance: CYANOCOBALAMIN
     Indication: PRODUCT USED FOR UNKNOWN INDICATION
     Dosage: 1 MG, QD
     Route: 048
     Dates: end: 20200214
  6. GALANTAMINE                        /00382002/ [Concomitant]
     Indication: DEMENTIA ALZHEIMER^S TYPE
     Dosage: UNK
     Route: 048
     Dates: start: 20190913, end: 20200214
  7. EXELON [Concomitant]
     Active Substance: RIVASTIGMINE TARTRATE
     Indication: DEMENTIA ALZHEIMER^S TYPE
     Dosage: UNK
     Route: 062
     Dates: start: 20190701, end: 20190820
  8. FURESIS [Concomitant]
     Active Substance: FUROSEMIDE
     Indication: POLYURIA
     Dosage: 40 MG, QD
     Route: 048
     Dates: start: 20160105, end: 20200214

REACTIONS (10)
  - Neurologic neglect syndrome [Fatal]
  - Head injury [Fatal]
  - Hip fracture [Fatal]
  - General physical health deterioration [Fatal]
  - Dysphagia [Fatal]
  - Aphasia [Fatal]
  - Cerebral infarction [Fatal]
  - Hemiparesis [Fatal]
  - Transient ischaemic attack [Fatal]
  - Fall [Fatal]

NARRATIVE: CASE EVENT DATE: 20190721
